FAERS Safety Report 22363559 (Version 2)
Quarter: 2023Q2

REPORT INFORMATION
  Report Type: Spontaneous
  Country: JP (occurrence: JP)
  Receive Date: 20230525
  Receipt Date: 20230602
  Transmission Date: 20230721
  Serious: Yes (Other)
  Sender: FDA-Public Use
  Company Number: JP-CHUGAI-2023017715

PATIENT
  Age: 10 Decade
  Sex: Female

DRUGS (1)
  1. HEMLIBRA [Suspect]
     Active Substance: EMICIZUMAB-KXWH
     Indication: Acquired haemophilia
     Dosage: UNK
     Route: 058
     Dates: start: 20200928

REACTIONS (2)
  - Activated partial thromboplastin time prolonged [Not Recovered/Not Resolved]
  - Complicated appendicitis [Recovered/Resolved]
